FAERS Safety Report 20449319 (Version 1)
Quarter: 2022Q1

REPORT INFORMATION
  Report Type: Spontaneous
  Country: RO (occurrence: None)
  Receive Date: 20220209
  Receipt Date: 20220209
  Transmission Date: 20220423
  Serious: Yes (Other)
  Sender: FDA-Public Use
  Company Number: RO-ROCHE-3013125

PATIENT
  Age: 42 Year
  Sex: Male

DRUGS (3)
  1. OCREVUS [Suspect]
     Active Substance: OCRELIZUMAB
     Indication: Relapsing-remitting multiple sclerosis
     Dosage: START DATE: /NOV/2021
     Route: 065
  2. INTERFERON BETA-1A [Concomitant]
     Active Substance: INTERFERON BETA-1A
  3. TERIFLUNOMIDE [Concomitant]
     Active Substance: TERIFLUNOMIDE

REACTIONS (1)
  - Transaminases increased [Unknown]

NARRATIVE: CASE EVENT DATE: 20210101
